FAERS Safety Report 23516251 (Version 2)
Quarter: 2024Q2

REPORT INFORMATION
  Report Type: Report from Study
  Country: AT (occurrence: AT)
  Receive Date: 20240213
  Receipt Date: 20240521
  Transmission Date: 20240716
  Serious: Yes (Other)
  Sender: FDA-Public Use
  Company Number: AT-Merck Healthcare KGaA-2024007353

PATIENT
  Age: 83 Year
  Sex: Female

DRUGS (2)
  1. REBIF [Suspect]
     Active Substance: INTERFERON BETA-1A
     Indication: Multiple sclerosis
     Route: 058
     Dates: start: 2008, end: 2023
  2. REBIF [Suspect]
     Active Substance: INTERFERON BETA-1A

REACTIONS (4)
  - Cerebral thrombosis [Recovered/Resolved]
  - Memory impairment [Not Recovered/Not Resolved]
  - Disturbance in attention [Not Recovered/Not Resolved]
  - Drug ineffective [Unknown]

NARRATIVE: CASE EVENT DATE: 20230101
